FAERS Safety Report 9988454 (Version 1)
Quarter: 2014Q1

REPORT INFORMATION
  Report Type: Spontaneous
  Country: US (occurrence: US)
  Receive Date: 20140310
  Receipt Date: 20140310
  Transmission Date: 20141002
  Serious: No
  Sender: FDA-Public Use
  Company Number: US-BIOGENIDEC-2013BI052850

PATIENT
  Age: 49 Year
  Sex: Female

DRUGS (8)
  1. TECFIDERA [Suspect]
     Indication: MULTIPLE SCLEROSIS
     Route: 048
     Dates: start: 20130523, end: 20130529
  2. TECFIDERA [Suspect]
     Indication: MULTIPLE SCLEROSIS
     Route: 048
     Dates: start: 20130601
  3. BUSPAR [Concomitant]
  4. HYDROCHLORTHIAZIDE [Concomitant]
  5. DERMATOP [Concomitant]
  6. ZESTRIL [Concomitant]
  7. ALLEGRA [Concomitant]
  8. SINGULAIR [Concomitant]

REACTIONS (7)
  - Headache [Not Recovered/Not Resolved]
  - Flatulence [Not Recovered/Not Resolved]
  - Influenza [Recovered/Resolved]
  - Abdominal pain upper [Not Recovered/Not Resolved]
  - Flushing [Not Recovered/Not Resolved]
  - Dyspepsia [Not Recovered/Not Resolved]
  - Abdominal discomfort [Not Recovered/Not Resolved]
